FAERS Safety Report 5763651-8 (Version None)
Quarter: 2008Q2

REPORT INFORMATION
  Report Type: 
  Country: None (occurrence: None)
  Receive Date: 20080610
  Receipt Date: 20080103
  Transmission Date: 20081010
  Serious: No
  Sender: FDA-Public Use
  Company Number: US-BAYER-200810352NA

PATIENT
  Age: 36 Year
  Sex: Female
  Weight: 68 kg

DRUGS (3)
  1. MIRENA [Suspect]
     Indication: CONTRACEPTION
     Route: 015
     Dates: start: 20070901, end: 20071107
  2. CYMBALTA [Concomitant]
     Indication: DEPRESSION
  3. LEXAPRO [Concomitant]
     Indication: DEPRESSION

REACTIONS (9)
  - ALOPECIA [None]
  - BACK PAIN [None]
  - BREAST SWELLING [None]
  - DISTURBANCE IN ATTENTION [None]
  - GENITAL HAEMORRHAGE [None]
  - MOOD SWINGS [None]
  - PRURITUS [None]
  - URINARY TRACT INFECTION [None]
  - VAGINAL HAEMORRHAGE [None]
